FAERS Safety Report 6620025-5 (Version None)
Quarter: 2010Q1

REPORT INFORMATION
  Report Type: 
  Country: None (occurrence: None)
  Receive Date: 20100309
  Receipt Date: 20100226
  Transmission Date: 20100710
  Serious: Yes (Hospitalization)
  Sender: FDA-Public Use
  Company Number: JP-ROCHE-683675

PATIENT
  Sex: Male
  Weight: 67 kg

DRUGS (12)
  1. BEVACIZUMAB [Suspect]
     Indication: MALIGNANT GLIOMA
     Dosage: INJECTION
     Route: 042
     Dates: start: 20100119
  2. GASTER D [Concomitant]
     Route: 048
     Dates: end: 20100129
  3. PREDONINE [Concomitant]
     Route: 048
     Dates: end: 20100129
  4. ISORBIDE [Concomitant]
     Dosage: FORM:PERORAL LIQUID PREPARATION
     Route: 048
     Dates: end: 20100129
  5. DEPAKENE [Concomitant]
     Route: 048
     Dates: end: 20100129
  6. CLOBAZAM [Concomitant]
     Route: 048
  7. BEZATOL SR [Concomitant]
     Route: 048
     Dates: end: 20100129
  8. NOVOLIN R [Concomitant]
     Dosage: FORM:INJECTION,FIVE UNITS OF MORNING, EIGHT UNITS OF DAYTIME, AND SIX UNITS OF NIGHT
     Route: 058
     Dates: end: 20100129
  9. MAGLAX [Concomitant]
     Route: 048
     Dates: end: 20100129
  10. BAKTAR [Concomitant]
     Dosage: THE MOON LIQUID GOLD
     Route: 048
     Dates: end: 20100129
  11. MEDICON [Concomitant]
     Route: 048
     Dates: start: 20100126, end: 20100129
  12. FLOMOX [Concomitant]
     Route: 048
     Dates: start: 20100126, end: 20100129

REACTIONS (1)
  - CONVULSION [None]
